FAERS Safety Report 8090514-8 (Version None)
Quarter: 2012Q1

REPORT INFORMATION
  Report Type: 
  Country: None (occurrence: None)
  Receive Date: 20120129
  Receipt Date: 20111103
  Transmission Date: 20120608
  Serious: No
  Sender: FDA-Public Use
  Company Number: US-ABBOTT-11P-163-0871191-00

PATIENT
  Age: 55 Year
  Sex: Male

DRUGS (8)
  1. HUMIRA [Suspect]
     Indication: RHEUMATOID ARTHRITIS
  2. HUMIRA [Suspect]
     Dates: start: 20110301
  3. FOLIC ACID [Concomitant]
     Indication: PRODUCT USED FOR UNKNOWN INDICATION
  4. DICLOFENAC [Concomitant]
     Indication: INSOMNIA
  5. METHADONE HCL [Concomitant]
     Indication: PAIN
  6. DICLOFENAC [Concomitant]
     Indication: NECK PAIN
  7. METHOTREXATE [Concomitant]
     Indication: RHEUMATOID ARTHRITIS
  8. PRISTIQ [Concomitant]
     Indication: DEPRESSION

REACTIONS (4)
  - DRUG INEFFECTIVE [None]
  - NAUSEA [None]
  - ARTHRALGIA [None]
  - INAPPROPRIATE SCHEDULE OF DRUG ADMINISTRATION [None]
